FAERS Safety Report 20582044 (Version 1)
Quarter: 2022Q1

REPORT INFORMATION
  Report Type: Spontaneous
  Country: US (occurrence: US)
  Receive Date: 20220311
  Receipt Date: 20220311
  Transmission Date: 20220423
  Serious: Yes (Life-Threatening, Hospitalization)
  Sender: FDA-Public Use
  Company Number: US-LUPIN PHARMACEUTICALS INC.-2022-03341

PATIENT
  Age: 6 Week
  Sex: Female

DRUGS (7)
  1. NADOLOL [Suspect]
     Active Substance: NADOLOL
     Indication: Atrial tachycardia
     Dosage: UNK
     Route: 065
  2. ESMOLOL [Suspect]
     Active Substance: ESMOLOL HYDROCHLORIDE
     Indication: Atrial tachycardia
     Dosage: UNK, INFUSION
     Route: 065
  3. DILTIAZEM [Suspect]
     Active Substance: DILTIAZEM
     Indication: Atrial tachycardia
     Dosage: UNK
     Route: 065
  4. FLECAINIDE [Suspect]
     Active Substance: FLECAINIDE
     Indication: Atrial tachycardia
     Dosage: UNK
     Route: 065
  5. AMIODARONE [Suspect]
     Active Substance: AMIODARONE
     Indication: Atrial tachycardia
     Dosage: UNK
     Route: 065
  6. TRAMETINIB [Suspect]
     Active Substance: TRAMETINIB
     Indication: Atrial tachycardia
     Dosage: 0.025 MILLIGRAM/KILOGRAM, QD
     Route: 065
  7. TRAMETINIB [Suspect]
     Active Substance: TRAMETINIB
     Dosage: 0.018 MILLIGRAM/KILOGRAM, QD
     Route: 065

REACTIONS (2)
  - Drug ineffective for unapproved indication [Unknown]
  - Off label use [Unknown]
